FAERS Safety Report 26027454 (Version 2)
Quarter: 2025Q4

REPORT INFORMATION
  Report Type: Spontaneous
  Country: JP (occurrence: JP)
  Receive Date: 20251111
  Receipt Date: 20251218
  Transmission Date: 20260117
  Serious: Yes (Death)
  Sender: ABBVIE
  Company Number: JP-ABBVIE-6542668

PATIENT
  Age: 60 Year
  Sex: Male

DRUGS (1)
  1. SKYRIZI [Suspect]
     Active Substance: RISANKIZUMAB-RZAA
     Indication: Crohn^s disease
     Dosage: FORM STRENGTH: 360 MILLIGRAM?SOLUTION FOR INJECTION IN CARTRIDGE
     Route: 058
     Dates: start: 20250731

REACTIONS (1)
  - Coronavirus infection [Fatal]

NARRATIVE: CASE EVENT DATE: 20250101
